FAERS Safety Report 7687904-1 (Version None)
Quarter: 2011Q3

REPORT INFORMATION
  Report Type: 
  Country: None (occurrence: None)
  Receive Date: 20110816
  Receipt Date: 20110816
  Transmission Date: 20111222
  Serious: Yes (Life-Threatening, Disabling, Other)
  Sender: FDA-Public Use
  Company Number: None

PATIENT
  Age: 50 Year
  Sex: Female
  Weight: 67.1324 kg

DRUGS (6)
  1. CYMBALTA [Suspect]
     Indication: POST-TRAUMATIC STRESS DISORDER
     Dosage: 30 MG 1 CAP DAILY
     Dates: start: 20110420, end: 20110423
  2. OXYCODONE HCL [Concomitant]
  3. HORMOMES [Concomitant]
  4. MS CONTIN [Concomitant]
  5. VALIUM [Concomitant]
  6. VITAMIN D [Concomitant]

REACTIONS (18)
  - SOMNOLENCE [None]
  - PANIC ATTACK [None]
  - PSYCHOMOTOR HYPERACTIVITY [None]
  - UNEVALUABLE EVENT [None]
  - DYSKINESIA [None]
  - DECREASED APPETITE [None]
  - VISCERAL PAIN [None]
  - GASTRIC DISORDER [None]
  - HEPATIC PAIN [None]
  - OROPHARYNGEAL PAIN [None]
  - MULTIPLE ALLERGIES [None]
  - SINUS DISORDER [None]
  - NEURALGIA [None]
  - HEADACHE [None]
  - HYPERTENSION [None]
  - PALPITATIONS [None]
  - PARAESTHESIA [None]
  - ABDOMINAL PAIN UPPER [None]
